FAERS Safety Report 21935370 (Version 5)
Quarter: 2023Q1

REPORT INFORMATION
  Report Type: Spontaneous
  Country: US (occurrence: US)
  Receive Date: 20230201
  Receipt Date: 20230330
  Transmission Date: 20230417
  Serious: No
  Sender: FDA-Public Use
  Company Number: US-PFIZER INC-PV202300011975

PATIENT
  Age: 14 Year
  Sex: Male
  Weight: 58.97 kg

DRUGS (2)
  1. GENOTROPIN [Suspect]
     Active Substance: SOMATROPIN
     Indication: Short stature
     Dosage: 3 MG, CYCLIC (INJECTS ONCE DAILY FOR SIX DAYS A WEEK)
     Dates: start: 202103
  2. ESTROGENS [Concomitant]
     Active Substance: ESTROGENS
     Dosage: UNK, CYCLIC (ONCE DAILY FOR SIX DAYS A WEEK)

REACTIONS (3)
  - Device use issue [Unknown]
  - Poor quality device used [Unknown]
  - Device issue [Unknown]

NARRATIVE: CASE EVENT DATE: 20220101
